FAERS Safety Report 9401105 (Version 1)
Quarter: 2013Q3

REPORT INFORMATION
  Report Type: Spontaneous
  Country: UA (occurrence: UA)
  Receive Date: 20130715
  Receipt Date: 20130715
  Transmission Date: 20140515
  Serious: Yes (Life-Threatening)
  Sender: FDA-Public Use
  Company Number: UA-TEVA-416955ISR

PATIENT
  Age: 31 Year
  Sex: 0

DRUGS (1)
  1. PACLITAXEL-TEVA [Suspect]
     Indication: BREAST CANCER STAGE IV
     Dates: start: 20130702, end: 20130702

REACTIONS (8)
  - Ventricular tachycardia [Recovered/Resolved]
  - Tachycardia [Recovered/Resolved]
  - Heart rate irregular [Recovered/Resolved]
  - Dyspnoea [Recovered/Resolved]
  - Blood pressure immeasurable [Recovered/Resolved]
  - Pulse absent [Recovered/Resolved]
  - Feeling hot [Recovered/Resolved]
  - Mydriasis [Recovered/Resolved]
